FAERS Safety Report 5313884-X (Version None)
Quarter: 2007Q2

REPORT INFORMATION
  Report Type: 
  Country: None (occurrence: None)
  Receive Date: 20070501
  Receipt Date: 20070417
  Transmission Date: 20071010
  Serious: Yes (Death, Life-Threatening, Other)
  Sender: FDA-Public Use
  Company Number: US-KINGPHARMUSA00001-K200700488

PATIENT

DRUGS (22)
  1. SONATA [Suspect]
     Indication: INSOMNIA
     Dosage: 5 MG, PRN, HS
     Route: 048
     Dates: start: 20070411, end: 20070411
  2. SONATA [Suspect]
     Dosage: 5 MG, PRN, HS
     Route: 048
     Dates: start: 20070412, end: 20070412
  3. DILAUDID [Suspect]
     Dosage: 1 MG, SINGLE
     Route: 042
     Dates: start: 20070411, end: 20070411
  4. DILAUDID [Suspect]
     Dosage: 3 MG, SINGLE
     Route: 042
     Dates: start: 20070411, end: 20070411
  5. DILAUDID [Suspect]
     Dosage: 3 MG, SINGLE
     Route: 042
     Dates: start: 20070411, end: 20070411
  6. DILAUDID [Suspect]
     Dosage: 3 MG, SINGLE
     Route: 042
     Dates: start: 20070412, end: 20070412
  7. DILAUDID [Suspect]
     Dosage: 3 MG, SINGLE
     Route: 042
     Dates: start: 20070412, end: 20070412
  8. DILAUDID [Suspect]
     Dosage: 3 MG, SINGLE
     Route: 042
     Dates: start: 20070412, end: 20070412
  9. DILAUDID [Suspect]
     Dosage: 3 MG, SINGLE
     Route: 042
     Dates: start: 20070412, end: 20070412
  10. DILAUDID [Suspect]
     Dosage: 3 MG, SINGLE
     Route: 042
     Dates: start: 20070412, end: 20070412
  11. DILAUDID [Suspect]
     Dosage: 3 MG, SINGLE
     Route: 042
     Dates: start: 20070412, end: 20070412
  12. TOPROL-XL [Concomitant]
  13. XANAX XL [Concomitant]
     Indication: ANXIETY
     Dosage: 1 MG, PRN, Q8H
     Route: 048
     Dates: start: 20070401, end: 20070413
  14. AMBIEN [Concomitant]
     Dosage: UNK, PRN
  15. CIPROFLOXACIN [Concomitant]
     Indication: DIVERTICULUM
     Dosage: 200 MG, Q12 HOURS
     Route: 042
     Dates: start: 20070411, end: 20070413
  16. LACTOBACILLUS GG [Concomitant]
     Dosage: 1 CAP, BID
     Route: 048
     Dates: start: 20070412, end: 20070413
  17. HEPARIN [Concomitant]
     Indication: THROMBOSIS PROPHYLAXIS
     Dosage: 5000 U, Q8H
     Route: 058
     Dates: start: 20070412, end: 20070413
  18. METOPROLOL SUCCINATE [Concomitant]
     Indication: HYPERTENSION
     Dosage: 25 MG, QD
     Route: 048
     Dates: start: 20070411, end: 20070413
  19. METRONIDAZOLE [Concomitant]
     Indication: DIVERTICULUM
     Dosage: 500 MG, Q8H
     Route: 042
     Dates: start: 20070411, end: 20070413
  20. NICOTINE [Concomitant]
     Dosage: 21 MG, HR, SINGLE DOSE
     Route: 061
     Dates: start: 20070412, end: 20070412
  21. NEUTROPHOS PACKET [Concomitant]
     Indication: BLOOD PHOSPHORUS DECREASED
     Dosage: 1 PACKET, TID
     Route: 048
     Dates: start: 20070412, end: 20070413
  22. ACETAMINOPHEN [Concomitant]
     Indication: PYREXIA
     Dosage: 650 MG, PRN, Q4H
     Route: 048
     Dates: start: 20070411, end: 20070413

REACTIONS (7)
  - ANOXIC ENCEPHALOPATHY [None]
  - CARDIAC ARREST [None]
  - CONVULSION [None]
  - DRUG INTERACTION [None]
  - ENCEPHALOPATHY [None]
  - HYPOXIA [None]
  - UNRESPONSIVE TO STIMULI [None]
